FAERS Safety Report 9122478 (Version 2)
Quarter: 2013Q2

REPORT INFORMATION
  Report Type: Spontaneous
  Country: US (occurrence: None)
  Receive Date: 20120508
  Receipt Date: 20120709
  Transmission Date: 20140414
  Serious: Yes (Other)
  Sender: FDA-Public Use
  Company Number: 2012HGS-003175

PATIENT
  Age: 60 Year
  Sex: Female
  Weight: 98.88 kg

DRUGS (2)
  1. BENLYSTA [Suspect]
     Indication: SYSTEMIC LUPUS ERYTHEMATOSUS
     Route: 041
     Dates: start: 20120113, end: 20120113
  2. BENLYSTA [Suspect]
     Route: 041
     Dates: start: 20120113, end: 20120113

REACTIONS (3)
  - Infusion related reaction [None]
  - Hypertension [None]
  - Tachycardia [None]
